FAERS Safety Report 8530347-9 (Version None)
Quarter: 2012Q3

REPORT INFORMATION
  Report Type: 
  Country: None (occurrence: None)
  Receive Date: 20120723
  Receipt Date: 20120711
  Transmission Date: 20120928
  Serious: Yes (Hospitalization)
  Sender: FDA-Public Use
  Company Number: DK-CELGENEUS-044-20785-12022953

PATIENT
  Sex: Female

DRUGS (14)
  1. MELPHALAN HYDROCHLORIDE [Suspect]
     Indication: MULTIPLE MYELOMA
     Route: 048
     Dates: start: 20100826
  2. MELPHALAN HYDROCHLORIDE [Suspect]
     Route: 048
     Dates: start: 20110303, end: 20110306
  3. MELPHALAN HYDROCHLORIDE [Suspect]
     Route: 048
     Dates: end: 20110621
  4. ARANESP [Concomitant]
     Indication: ANAEMIA
     Route: 065
  5. PREDNISONE [Suspect]
     Route: 048
     Dates: start: 20110303, end: 20110306
  6. THALIDOMIDE [Suspect]
     Indication: MULTIPLE MYELOMA
     Route: 048
     Dates: start: 20100826
  7. METFORMIN HYDROCHLORIDE [Concomitant]
     Indication: DIABETES MELLITUS
     Route: 065
  8. PREDNISONE [Suspect]
     Indication: MULTIPLE MYELOMA
     Route: 048
     Dates: start: 20100826
  9. THALIDOMIDE [Suspect]
     Dosage: DOSE REDUCED
     Route: 048
     Dates: start: 20100901, end: 20100923
  10. THALIDOMIDE [Suspect]
     Dosage: 100 MILLIGRAM
     Route: 048
     Dates: start: 20101026, end: 20101123
  11. PREDNISONE [Suspect]
     Route: 048
     Dates: end: 20110621
  12. CENTYL [Concomitant]
     Indication: HYPERTENSION
     Route: 065
  13. ACYCLOVIR [Concomitant]
     Indication: PROPHYLAXIS
     Route: 065
  14. PROPRANOLOL [Concomitant]
     Indication: HYPERTENSION
     Route: 065

REACTIONS (1)
  - ENDOMETRIAL CANCER [None]
